FAERS Safety Report 14634005 (Version 4)
Quarter: 2018Q2

REPORT INFORMATION
  Report Type: Report from Study
  Country: None (occurrence: US)
  Receive Date: 20180314
  Receipt Date: 20180528
  Transmission Date: 20180711
  Serious: No
  Sender: FDA-Public Use
  Company Number: US-ABBVIE-18K-163-2285885-00

PATIENT
  Age: 28 Year
  Sex: Female

DRUGS (5)
  1. HUMIRA [Suspect]
     Active Substance: ADALIMUMAB
     Indication: RHEUMATOID ARTHRITIS
     Route: 058
     Dates: start: 201708
  2. HUMIRA [Suspect]
     Active Substance: ADALIMUMAB
     Route: 058
     Dates: start: 201803
  3. ZOLOFT [Concomitant]
     Active Substance: SERTRALINE HYDROCHLORIDE
     Indication: DEPRESSION
  4. PROGESTERONE. [Concomitant]
     Active Substance: PROGESTERONE
     Indication: PRODUCT USED FOR UNKNOWN INDICATION
     Dates: start: 2017, end: 20171127
  5. ALPRAZOLAM. [Concomitant]
     Active Substance: ALPRAZOLAM
     Indication: ANXIETY

REACTIONS (8)
  - Live birth [Unknown]
  - Feeling abnormal [Unknown]
  - Nasopharyngitis [Recovering/Resolving]
  - Drug ineffective [Unknown]
  - Exposure during pregnancy [Unknown]
  - Joint stiffness [Not Recovered/Not Resolved]
  - Arthralgia [Not Recovered/Not Resolved]
  - Rheumatoid arthritis [Unknown]

NARRATIVE: CASE EVENT DATE: 2017
